FAERS Safety Report 9978875 (Version 1)
Quarter: 2014Q1

REPORT INFORMATION
  Report Type: Report from Study
  Country: US (occurrence: US)
  Receive Date: 20140306
  Receipt Date: 20140306
  Transmission Date: 20141002
  Serious: No
  Sender: FDA-Public Use
  Company Number: US-ABBVIE-13P-163-1173739-00

PATIENT
  Age: 43 Year
  Sex: Female

DRUGS (6)
  1. HUMIRA [Suspect]
     Indication: CROHN^S DISEASE
     Dosage: LOADING DOSE
     Dates: start: 20131121, end: 20131121
  2. HUMIRA [Suspect]
     Dosage: LOADING DOSE
  3. PREDNISONE [Concomitant]
     Indication: CROHN^S DISEASE
     Dosage: TAPER FOR CROHN^S
  4. SYNTHROID [Concomitant]
     Indication: HYPOTHYROIDISM
  5. ZOFRAN [Concomitant]
     Indication: NAUSEA
  6. METRONIDAZOLE [Concomitant]
     Indication: INFECTION
     Dosage: STATES PHYSICIAN IS AWARE INFECTION WAS BEFORE SHE STARTED THE HUMIRA

REACTIONS (3)
  - Fatigue [Unknown]
  - Fatigue [Unknown]
  - Injection site pain [Recovering/Resolving]
